FAERS Safety Report 10522890 (Version 2)
Quarter: 2014Q4

REPORT INFORMATION
  Report Type: Spontaneous
  Country: IT (occurrence: IT)
  Receive Date: 20141016
  Receipt Date: 20141016
  Transmission Date: 20150528
  Serious: Yes (Hospitalization)
  Sender: FDA-Public Use
  Company Number: IT-GLAXOSMITHKLINE-B1034542A

PATIENT
  Age: 59 Year
  Sex: Male

DRUGS (1)
  1. PANADOL [Suspect]
     Active Substance: ACETAMINOPHEN
     Indication: HYPERPYREXIA
     Route: 065
     Dates: start: 20140101, end: 20140104

REACTIONS (4)
  - Transaminases increased [Recovering/Resolving]
  - Jaundice [Recovering/Resolving]
  - Drug administration error [Recovering/Resolving]
  - Toxicity to various agents [Unknown]

NARRATIVE: CASE EVENT DATE: 20140104
